FAERS Safety Report 10178608 (Version 1)
Quarter: 2014Q2

REPORT INFORMATION
  Report Type: Spontaneous
  Country: US (occurrence: None)
  Receive Date: 20140516
  Receipt Date: 20140516
  Transmission Date: 20141212
  Serious: Yes (Other)
  Sender: FDA-Public Use
  Company Number: None

PATIENT
  Age: 27 Year
  Sex: Female
  Weight: 81.65 kg

DRUGS (2)
  1. ABILIFY [Suspect]
     Indication: ANXIETY
  2. ABILIFY [Suspect]
     Indication: DEPRESSION

REACTIONS (4)
  - Vision blurred [None]
  - Feeling abnormal [None]
  - Restlessness [None]
  - Logorrhoea [None]
